FAERS Safety Report 11578275 (Version 1)
Quarter: 2015Q3

REPORT INFORMATION
  Report Type: Spontaneous
  Country: None (occurrence: US)
  Receive Date: 20150930
  Receipt Date: 20150930
  Transmission Date: 20151125
  Serious: No
  Sender: FDA-Public Use
  Company Number: US-MERZ NORTH AMERICA, INC.-15MRZ-00531

PATIENT
  Age: 48 Year
  Sex: Female
  Weight: 59.02 kg

DRUGS (1)
  1. XEOMIN [Suspect]
     Active Substance: INCOBOTULINUMTOXINA
     Indication: SKIN COSMETIC PROCEDURE
     Dates: start: 20150929, end: 20150929

REACTIONS (1)
  - Injection site pain [None]

NARRATIVE: CASE EVENT DATE: 20150929
